FAERS Safety Report 10750761 (Version 1)
Quarter: 2015Q1

REPORT INFORMATION
  Report Type: Spontaneous
  Country: US (occurrence: US)
  Receive Date: 20150130
  Receipt Date: 20150130
  Transmission Date: 20150721
  Serious: Yes (Other)
  Sender: FDA-Public Use
  Company Number: US-ASTRAZENECA-2015SE07974

PATIENT
  Age: 73 Year
  Sex: Female
  Weight: 121.1 kg

DRUGS (8)
  1. ZESTRIL [Suspect]
     Active Substance: LISINOPRIL
     Indication: HYPERTENSION
     Dosage: ONCE PER DAY
     Route: 048
     Dates: start: 2000
  2. GLINIPERIDE [Concomitant]
     Indication: DIABETES MELLITUS
     Dates: start: 2013
  3. BABY ASPIRIN [Concomitant]
     Active Substance: ASPIRIN
     Dates: start: 2000
  4. NEXIUM [Suspect]
     Active Substance: ESOMEPRAZOLE MAGNESIUM
     Indication: DYSPEPSIA
     Route: 048
     Dates: start: 2008, end: 2013
  5. NEXIUM [Suspect]
     Active Substance: ESOMEPRAZOLE MAGNESIUM
     Indication: DYSPEPSIA
     Route: 048
     Dates: start: 20150121
  6. PRILOSEC [Suspect]
     Active Substance: OMEPRAZOLE MAGNESIUM
     Indication: DYSPEPSIA
     Route: 048
  7. INDERAL [Concomitant]
     Active Substance: PROPRANOLOL HYDROCHLORIDE
     Indication: BLOOD PRESSURE ABNORMAL
     Dates: start: 2000
  8. OMEPRAZOLE MAGNESIUM/OTC [Suspect]
     Active Substance: OMEPRAZOLE MAGNESIUM
     Indication: DYSPEPSIA
     Route: 048
     Dates: start: 2014, end: 20150120

REACTIONS (8)
  - Hypothyroidism [Unknown]
  - Pain in extremity [Unknown]
  - Radial nerve injury [Unknown]
  - Atrial fibrillation [Unknown]
  - Drug ineffective [Unknown]
  - Fall [Unknown]
  - Arthritis [Unknown]
  - Upper limb fracture [Unknown]

NARRATIVE: CASE EVENT DATE: 2012
